FAERS Safety Report 15049289 (Version 1)
Quarter: 2018Q2

REPORT INFORMATION
  Report Type: Spontaneous
  Country: US (occurrence: US)
  Receive Date: 20180601
  Receipt Date: 20180601
  Transmission Date: 20180711
  Serious: No
  Sender: FDA-Public Use
  Company Number: None

PATIENT
  Age: 30 Year
  Sex: Female

DRUGS (1)
  1. SUBOXONE [Suspect]
     Active Substance: BUPRENORPHINE HYDROCHLORIDE\NALOXONE HYDROCHLORIDE
     Indication: DRUG ABUSE
     Route: 060
     Dates: start: 20180531, end: 20180601

REACTIONS (5)
  - Neck pain [None]
  - Product formulation issue [None]
  - Trismus [None]
  - Headache [None]
  - Bruxism [None]

NARRATIVE: CASE EVENT DATE: 20180101
